FAERS Safety Report 4281389-3 (Version None)
Quarter: 2004Q1

REPORT INFORMATION
  Report Type: 
  Country: None (occurrence: None)
  Receive Date: 20040108
  Receipt Date: 20030204
  Transmission Date: 20041129
  Serious: Yes (Other)
  Sender: FDA-Public Use
  Company Number: HQWYE309310FEB03

PATIENT
  Sex: Female

DRUGS (1)
  1. PREMPRO [Suspect]
     Dosage: ORAL
     Route: 048

REACTIONS (10)
  - ABDOMINAL PAIN [None]
  - ALOPECIA [None]
  - DEPRESSION [None]
  - DIZZINESS [None]
  - FLUID RETENTION [None]
  - METRORRHAGIA [None]
  - MIGRAINE [None]
  - NAUSEA [None]
  - OCULAR ICTERUS [None]
  - UTERINE CANCER [None]
